FAERS Safety Report 6367637-4 (Version None)
Quarter: 2009Q3

REPORT INFORMATION
  Report Type: 
  Country: None (occurrence: None)
  Receive Date: 20090921
  Receipt Date: 20090914
  Transmission Date: 20100115
  Serious: Yes (Other)
  Sender: FDA-Public Use
  Company Number: BR-ABBOTT-09P-020-0592253-00

PATIENT
  Sex: Male
  Weight: 65 kg

DRUGS (6)
  1. HUMIRA [Suspect]
     Indication: CROHN'S DISEASE
     Route: 058
     Dates: start: 20070701
  2. HUMIRA [Suspect]
  3. HUMIRA [Suspect]
  4. HUMIRA [Suspect]
     Dates: end: 20090512
  5. HUMIRA [Suspect]
     Dates: end: 20090401
  6. HUMIRA [Suspect]
     Dates: start: 20090801

REACTIONS (2)
  - CYSTITIS NONINFECTIVE [None]
  - GASTROINTESTINAL INFLAMMATION [None]
